FAERS Safety Report 5098790-0 (Version None)
Quarter: 2006Q3

REPORT INFORMATION
  Report Type: 
  Country: None (occurrence: None)
  Receive Date: 20060907
  Receipt Date: 20060828
  Transmission Date: 20061208
  Serious: Yes (Hospitalization)
  Sender: FDA-Public Use
  Company Number: DE-AMGEN-UK191541

PATIENT

DRUGS (4)
  1. ARANESP [Suspect]
     Indication: ANAEMIA OF MALIGNANT DISEASE
     Route: 058
     Dates: start: 20060715
  2. FLUOROURACIL [Concomitant]
     Route: 042
     Dates: start: 20060428
  3. CYCLOPHOSPHAMIDE [Concomitant]
     Route: 042
     Dates: start: 20060428
  4. EPIRUBICIN [Concomitant]
     Route: 042
     Dates: start: 20060428

REACTIONS (1)
  - BONE PAIN [None]
